FAERS Safety Report 10191482 (Version 3)
Quarter: 2014Q3

REPORT INFORMATION
  Report Type: Spontaneous
  Country: IE (occurrence: IE)
  Receive Date: 20140523
  Receipt Date: 20140823
  Transmission Date: 20150326
  Serious: Yes (Life-Threatening, Hospitalization)
  Sender: FDA-Public Use
  Company Number: PHFR2014IE003643

PATIENT
  Age: 21 Year
  Sex: Male

DRUGS (6)
  1. LEVETIRACETAM. [Concomitant]
     Active Substance: LEVETIRACETAM
     Dosage: 1250 UKN, UNK
     Route: 048
  2. TAZOCIN [Concomitant]
     Active Substance: PIPERACILLIN SODIUM\TAZOBACTAM SODIUM
     Dosage: TID
     Route: 042
     Dates: end: 20140513
  3. GILENYA [Suspect]
     Active Substance: FINGOLIMOD HYDROCHLORIDE
     Indication: RELAPSING-REMITTING MULTIPLE SCLEROSIS
     Dosage: 0.5 MG, QD
     Route: 048
     Dates: start: 20130801, end: 201403
  4. PREDNISOLONE. [Concomitant]
     Active Substance: PREDNISOLONE
     Dosage: UNK UKN, QD
     Route: 048
  5. PHENYTOIN. [Concomitant]
     Active Substance: PHENYTOIN
     Dosage: AT NIGHT
     Route: 048
  6. L THYROXINE [Concomitant]
     Active Substance: LEVOTHYROXINE SODIUM
     Dosage: UNK UKN, QD
     Route: 048

REACTIONS (11)
  - Blood thyroid stimulating hormone increased [Unknown]
  - Amino acid level increased [Unknown]
  - Mydriasis [Recovered/Resolved]
  - Dysuria [Recovered/Resolved]
  - Anxiety [Recovering/Resolving]
  - Ammonia increased [Unknown]
  - Autoimmune thyroiditis [Recovered/Resolved with Sequelae]
  - Anti-thyroid antibody positive [Unknown]
  - Agitation [Recovering/Resolving]
  - Confusional state [Recovered/Resolved]
  - Urinary tract infection [Recovering/Resolving]

NARRATIVE: CASE EVENT DATE: 20140506
